FAERS Safety Report 5665020-8 (Version None)
Quarter: 2008Q1

REPORT INFORMATION
  Report Type: 
  Country: None (occurrence: None)
  Receive Date: 20080314
  Receipt Date: 20080304
  Transmission Date: 20080703
  Serious: Yes (Life-Threatening, Other)
  Sender: FDA-Public Use
  Company Number: JP-PFIZER INC-2008020815

PATIENT
  Sex: Male

DRUGS (3)
  1. ALDACTONE [Suspect]
     Route: 048
  2. ENALAPRIL MALEATE [Suspect]
     Route: 048
  3. TENORMIN [Concomitant]
     Route: 048

REACTIONS (1)
  - PLATELET COUNT DECREASED [None]
